FAERS Safety Report 4768156-9 (Version None)
Quarter: 2005Q3

REPORT INFORMATION
  Report Type: 
  Country: None (occurrence: None)
  Receive Date: 20050912
  Receipt Date: 20050912
  Transmission Date: 20060218
  Serious: No
  Sender: FDA-Public Use
  Company Number: None

PATIENT
  Age: 59 Year
  Sex: Male

DRUGS (2)
  1. ASPIRIN [Suspect]
     Dosage: 81 MG DAILY
  2. IBUPROFEN [Suspect]
     Indication: BACK PAIN
     Dosage: PRN

REACTIONS (2)
  - DIVERTICULUM [None]
  - RECTAL HAEMORRHAGE [None]
